FAERS Safety Report 7911537-2 (Version None)
Quarter: 2011Q4

REPORT INFORMATION
  Report Type: 
  Country: None (occurrence: None)
  Receive Date: 20111114
  Receipt Date: 20111101
  Transmission Date: 20120403
  Serious: Yes (Other)
  Sender: FDA-Public Use
  Company Number: US-ELI_LILLY_AND_COMPANY-US201111001484

PATIENT
  Sex: Female

DRUGS (13)
  1. ROPINIROLE [Concomitant]
  2. LEVOTHYROXINE SODIUM [Concomitant]
  3. OXYBUTIN [Concomitant]
  4. LORAZEPAM [Concomitant]
  5. PANTOPRAZOLE [Concomitant]
  6. MAXALT                                  /USA/ [Concomitant]
  7. CRESTOR [Concomitant]
  8. BACLOFEN [Concomitant]
  9. TOPIRAMATE [Concomitant]
  10. LAMOTRIGINE [Concomitant]
  11. CYMBALTA [Suspect]
     Indication: DEPRESSION
     Dosage: 30 MG, BID
  12. FEXOFENADINE [Concomitant]
  13. LUMIGAN                                 /USA/ [Concomitant]

REACTIONS (4)
  - CHEST PAIN [None]
  - PERIPHERAL COLDNESS [None]
  - HYPOAESTHESIA [None]
  - WHITE BLOOD CELL COUNT INCREASED [None]
